FAERS Safety Report 6279193-X (Version None)
Quarter: 2009Q3

REPORT INFORMATION
  Report Type: 
  Country: None (occurrence: None)
  Receive Date: 20090723
  Receipt Date: 20080811
  Transmission Date: 20100115
  Serious: No
  Sender: FDA-Public Use
  Company Number: US-AMGEN-KDL287799

PATIENT
  Sex: Female
  Weight: 79.9 kg

DRUGS (7)
  1. PROCRIT [Suspect]
     Indication: RENAL FAILURE CHRONIC
     Dates: start: 20080611
  2. METFORMIN HCL [Concomitant]
  3. GLIPIZIDE [Concomitant]
  4. FUROSEMIDE [Concomitant]
  5. UNSPECIFIED ANTIHYPERTENSIVE AGENT [Concomitant]
  6. IRON [Concomitant]
  7. ALLOPURINOL [Concomitant]

REACTIONS (6)
  - CHEST PAIN [None]
  - DRY MOUTH [None]
  - DYSPNOEA [None]
  - GLOSSODYNIA [None]
  - HAEMOGLOBIN DECREASED [None]
  - PAIN [None]
